FAERS Safety Report 7271477-1 (Version None)
Quarter: 2011Q1

REPORT INFORMATION
  Report Type: 
  Country: None (occurrence: None)
  Receive Date: 20110125
  Receipt Date: 20110125
  Transmission Date: 20110831
  Serious: Yes (Other)
  Sender: FDA-Public Use
  Company Number: None

PATIENT
  Age: 52 Year
  Sex: Male
  Weight: 78.0187 kg

DRUGS (3)
  1. MANTOUX TUBERSOL 0.1CC SANOFI - PASTEUR [Suspect]
     Indication: TUBERCULIN TEST
     Dosage: 0.1CC ONCE ID
     Route: 023
     Dates: start: 20110110, end: 20110112
  2. ASPIRIN [Concomitant]
  3. SIMCOR [Concomitant]

REACTIONS (2)
  - NO THERAPEUTIC RESPONSE [None]
  - HYPERSENSITIVITY [None]
